FAERS Safety Report 20656942 (Version 2)
Quarter: 2022Q2

REPORT INFORMATION
  Report Type: Report from Study
  Country: GB (occurrence: GB)
  Receive Date: 20220331
  Receipt Date: 20220408
  Transmission Date: 20220720
  Serious: Yes (Death, Hospitalization, Other)
  Sender: FDA-Public Use
  Company Number: GB-PFIZER INC-202200454960

PATIENT
  Age: 71 Year
  Sex: Female
  Weight: 69 kg

DRUGS (1)
  1. ETANERCEPT [Suspect]
     Active Substance: ETANERCEPT
     Indication: Rheumatoid arthritis
     Dosage: UNK
     Route: 065
     Dates: start: 20160615, end: 20200214

REACTIONS (4)
  - Neoplasm malignant [Fatal]
  - Disease progression [Fatal]
  - Weight decreased [Fatal]
  - Decreased appetite [Fatal]

NARRATIVE: CASE EVENT DATE: 20200308
